APPROVED DRUG PRODUCT: TURQOZ
Active Ingredient: ETHINYL ESTRADIOL; NORGESTREL
Strength: 0.03MG;0.3MG
Dosage Form/Route: TABLET;ORAL-28
Application: A202980 | Product #001 | TE Code: AB
Applicant: LUPIN LTD
Approved: Jul 31, 2023 | RLD: No | RS: No | Type: RX